FAERS Safety Report 10241553 (Version 1)
Quarter: 2014Q2

REPORT INFORMATION
  Report Type: Other
  Country: DK (occurrence: US)
  Receive Date: 20140617
  Receipt Date: 20140617
  Transmission Date: 20141212
  Serious: Yes (Hospitalization)
  Sender: FDA-Public Use
  Company Number: US-FRI-1000068207

PATIENT
  Age: 74 Year
  Sex: Female

DRUGS (9)
  1. CITALOPRAM [Suspect]
  2. DONEPEZIL [Concomitant]
  3. QUETIAPINE [Concomitant]
  4. SERTRALINE [Concomitant]
  5. MIRTAZIPINE [Concomitant]
  6. RISPERIDONE [Concomitant]
  7. METOPROLOL [Concomitant]
  8. FLECAINIDE [Concomitant]
  9. PROPAFENONE [Concomitant]

REACTIONS (5)
  - Cognitive disorder [Recovering/Resolving]
  - Agitation [Unknown]
  - Confusional state [Unknown]
  - Insomnia [Unknown]
  - Anxiety [Not Recovered/Not Resolved]
